FAERS Safety Report 9648366 (Version 2)
Quarter: 2013Q4

REPORT INFORMATION
  Report Type: Spontaneous
  Country: US (occurrence: US)
  Receive Date: 20131028
  Receipt Date: 20131114
  Transmission Date: 20140711
  Serious: Yes (Hospitalization)
  Sender: FDA-Public Use
  Company Number: US-SUN PHARMACEUTICAL INDUSTRIES LTD-2013SUN04916

PATIENT
  Age: 21 Year
  Sex: Female

DRUGS (2)
  1. DOXYCYCLINE HYCLATE CAPSULES, USP 50 MG [Suspect]
     Indication: UPPER RESPIRATORY TRACT INFECTION
     Dosage: UNK
  2. CELEXA [Concomitant]
     Indication: ANXIETY
     Dosage: 60 MG, DAILY

REACTIONS (1)
  - Pancreatitis acute [Recovered/Resolved]
